FAERS Safety Report 25009829 (Version 4)
Quarter: 2025Q3

REPORT INFORMATION
  Report Type: Report from Study
  Country: AR (occurrence: AR)
  Receive Date: 20250225
  Receipt Date: 20250925
  Transmission Date: 20251020
  Serious: Yes (Hospitalization)
  Sender: AMGEN
  Company Number: AR-AMGEN-ARGSL2025034872

PATIENT
  Age: 59 Year
  Sex: Female
  Weight: 41 kg

DRUGS (1)
  1. VECTIBIX [Suspect]
     Active Substance: PANITUMUMAB
     Indication: Colorectal cancer
     Route: 065
     Dates: start: 20250128

REACTIONS (8)
  - Illness [Unknown]
  - Acne [Unknown]
  - Nasal oedema [Unknown]
  - Vaginal lesion [Unknown]
  - Mouth ulceration [Unknown]
  - Blister [Unknown]
  - Blood creatinine increased [Unknown]
  - Urticaria [Unknown]

NARRATIVE: CASE EVENT DATE: 20250101
